FAERS Safety Report 21370150 (Version 5)
Quarter: 2022Q4

REPORT INFORMATION
  Report Type: Spontaneous
  Country: JP (occurrence: JP)
  Receive Date: 20220923
  Receipt Date: 20221207
  Transmission Date: 20230113
  Serious: Yes (Hospitalization, Other)
  Sender: FDA-Public Use
  Company Number: JP-ABBVIE-4129168

PATIENT
  Sex: Female
  Weight: 45 kg

DRUGS (21)
  1. RINVOQ [Suspect]
     Active Substance: UPADACITINIB
     Indication: Dermatitis atopic
     Dosage: 15 MILLIGRAM
     Route: 048
     Dates: start: 20220830, end: 20220905
  2. MOSAPRIDE CITRATE DIHYDRATE [Concomitant]
     Active Substance: MOSAPRIDE CITRATE DIHYDRATE
     Indication: Diverticulitis
     Dosage: TIME INTERVAL: 0.33333333 DAYS: 15 MILLIGRAM
     Route: 048
     Dates: start: 202111
  3. DUPILUMAB [Concomitant]
     Active Substance: DUPILUMAB
     Indication: Product used for unknown indication
     Dates: start: 20220915
  4. D CHLORPHENIRAMINE MALEATE TAKEDA TEVA [Concomitant]
     Indication: Product used for unknown indication
     Dosage: 8 MILLIGRAM
     Route: 048
     Dates: start: 20220812
  5. MINODRONIC ACID [Concomitant]
     Active Substance: MINODRONIC ACID
     Indication: Product used for unknown indication
     Route: 048
     Dates: start: 20220601
  6. AMPHOTERICIN B [Suspect]
     Active Substance: AMPHOTERICIN B
     Indication: Product used for unknown indication
     Route: 048
     Dates: start: 20220830, end: 20220905
  7. LEVOCETIRIZINE HYDROCHLORIDE [Concomitant]
     Active Substance: LEVOCETIRIZINE HYDROCHLORIDE
     Indication: Dermatitis atopic
     Dosage: 10 MILLIGRAM
     Route: 048
     Dates: start: 20220609
  8. LUBIPROSTONE [Concomitant]
     Active Substance: LUBIPROSTONE
     Indication: Diverticulitis
     Dosage: 48 MICROGRAM
     Route: 048
     Dates: start: 202111
  9. CLOSTRIDIUM BUTYRICUM SPORES STRAIN M-55 [Concomitant]
     Active Substance: CLOSTRIDIUM BUTYRICUM SPORES STRAIN M-55
     Indication: Diverticulitis
     Dosage: TIME INTERVAL: 0.33333333 DAYS: 3 TABLET
     Route: 048
     Dates: start: 202111
  10. PREDNISOLONE [Concomitant]
     Active Substance: PREDNISOLONE
     Indication: Drug eruption
     Dosage: 10 MILLIGRAM
     Route: 048
     Dates: start: 20220916, end: 20220918
  11. PREDNISOLONE [Concomitant]
     Active Substance: PREDNISOLONE
     Indication: Drug eruption
     Dosage: 2.5 MILLIGRAM
     Route: 048
     Dates: start: 20221021
  12. PREDNISOLONE [Concomitant]
     Active Substance: PREDNISOLONE
     Indication: Drug eruption
     Dosage: 15 MILLIGRAM
     Route: 048
     Dates: start: 20220913, end: 20220915
  13. PREDNISOLONE [Concomitant]
     Active Substance: PREDNISOLONE
     Indication: Drug eruption
     Dosage: 25 MILLIGRAM
     Route: 048
     Dates: start: 20220906, end: 20220909
  14. PREDNISOLONE [Concomitant]
     Active Substance: PREDNISOLONE
     Indication: Drug eruption
     Dosage: 10 MILLIGRAM
     Route: 048
     Dates: start: 20221005, end: 20221011
  15. PREDNISOLONE [Concomitant]
     Active Substance: PREDNISOLONE
     Indication: Drug eruption
     Dosage: 15 MILLIGRAM
     Route: 048
     Dates: start: 20220905, end: 20220905
  16. PREDNISOLONE [Concomitant]
     Active Substance: PREDNISOLONE
     Indication: Drug eruption
     Dosage: 5 MILLIGRAM
     Route: 048
     Dates: start: 20220919, end: 20220921
  17. PREDNISOLONE [Concomitant]
     Active Substance: PREDNISOLONE
     Indication: Drug eruption
     Dosage: 20 MILLIGRAM
     Route: 048
     Dates: start: 20220910, end: 20220912
  18. PREDNISOLONE [Concomitant]
     Active Substance: PREDNISOLONE
     Indication: Drug eruption
     Dosage: 5 MILLIGRAM
     Route: 048
     Dates: start: 20221012, end: 20221020
  19. PREDNISOLONE [Concomitant]
     Active Substance: PREDNISOLONE
     Indication: Drug eruption
     Dosage: 15 MILLIGRAM
     Route: 048
     Dates: start: 20220929, end: 20221004
  20. PREDNISOLONE [Concomitant]
     Active Substance: PREDNISOLONE
     Indication: Drug eruption
     Dosage: 20 MILLIGRAM
     Route: 048
     Dates: start: 20220926, end: 20220928
  21. CEFDITOREN PIVOXIL [Concomitant]
     Active Substance: CEFDITOREN PIVOXIL
     Indication: Product used for unknown indication
     Route: 048
     Dates: start: 20220904, end: 20220906

REACTIONS (7)
  - Rash [Recovering/Resolving]
  - Drug eruption [Recovering/Resolving]
  - Erythema multiforme [Recovered/Resolved]
  - Infection [Recovering/Resolving]
  - Oedema peripheral [Unknown]
  - Feeling hot [Unknown]
  - Pyrexia [Unknown]

NARRATIVE: CASE EVENT DATE: 20220101
